FAERS Safety Report 12439606 (Version 1)
Quarter: 2016Q2

REPORT INFORMATION
  Report Type: Spontaneous
  Country: US (occurrence: US)
  Receive Date: 20160606
  Receipt Date: 20160606
  Transmission Date: 20160815
  Serious: Yes (Hospitalization)
  Sender: FDA-Public Use
  Company Number: US-BEH-2016070023

PATIENT
  Age: 75 Year
  Sex: Male

DRUGS (1)
  1. HIZENTRA [Suspect]
     Active Substance: HUMAN IMMUNOGLOBULIN G
     Indication: CHRONIC LYMPHOCYTIC LEUKAEMIA
     Dosage: 15 G, QOW
     Route: 058
     Dates: start: 20160523

REACTIONS (2)
  - Spinal compression fracture [Unknown]
  - Constipation [Unknown]

NARRATIVE: CASE EVENT DATE: 201605
